FAERS Safety Report 23187249 (Version 2)
Quarter: 2024Q1

REPORT INFORMATION
  Report Type: Report from Study
  Country: US (occurrence: US)
  Receive Date: 20231115
  Receipt Date: 20240104
  Transmission Date: 20240410
  Serious: Yes (Other)
  Sender: FDA-Public Use
  Company Number: US-ALXN-A202300180AA

PATIENT
  Sex: Female

DRUGS (1)
  1. ULTOMIRIS [Suspect]
     Active Substance: RAVULIZUMAB-CWVZ
     Indication: Myasthenia gravis
     Dosage: UNK
     Route: 065

REACTIONS (13)
  - Pertussis [Unknown]
  - Central venous catheterisation [Unknown]
  - Medical device site swelling [Unknown]
  - Fall [Unknown]
  - Device issue [Recovered/Resolved]
  - General physical condition abnormal [Unknown]
  - White blood cell count decreased [Unknown]
  - Thyroid hormones increased [Unknown]
  - Malaise [Unknown]
  - Cough [Recovering/Resolving]
  - Dyspnoea [Unknown]
  - Asthenia [Recovered/Resolved]
  - Fatigue [Recovering/Resolving]

NARRATIVE: CASE EVENT DATE: 20220901
